FAERS Safety Report 8369740-6 (Version None)
Quarter: 2012Q1

REPORT INFORMATION
  Report Type: 
  Country: None (occurrence: None)
  Receive Date: 20120323
  Receipt Date: 20111215
  Transmission Date: 20120608
  Serious: Yes (Disabling, Other)
  Sender: FDA-Public Use
  Company Number: 163-21880-11113831

PATIENT
  Age: 83 Year
  Sex: Male
  Weight: 79.4 kg

DRUGS (9)
  1. LASIX [Concomitant]
  2. PRILOSEC [Concomitant]
  3. COLACE (DOCUSATE SODIUM) [Concomitant]
  4. CARVEDILOL [Concomitant]
  5. GABAPENTIN [Concomitant]
  6. REVLIMID [Suspect]
     Indication: LYMPHATIC DISORDER
     Dosage: 10 MG, 1 IN 1 D, PO
     Route: 048
     Dates: start: 20110726
  7. FINASTERIDE [Concomitant]
  8. VITAMIN B12 [Concomitant]
  9. POTASSIUM CHLORIDE [Concomitant]

REACTIONS (2)
  - DEEP VEIN THROMBOSIS [None]
  - HAEMATOCHEZIA [None]
